FAERS Safety Report 15356177 (Version 1)
Quarter: 2018Q3

REPORT INFORMATION
  Report Type: Spontaneous
  Country: GB (occurrence: GB)
  Receive Date: 20180906
  Receipt Date: 20180906
  Transmission Date: 20181010
  Serious: Yes (Hospitalization)
  Sender: FDA-Public Use
  Company Number: GB-TEVA-2018-GB-951852

PATIENT
  Age: 63 Year
  Sex: Male

DRUGS (16)
  1. SITAGLIPTIN [Concomitant]
     Active Substance: SITAGLIPTIN
     Dosage: 100 MILLIGRAM DAILY;
  2. IBUPROFEN. [Concomitant]
     Active Substance: IBUPROFEN
     Dosage: APPLY UP TO THREE TIMES A DAY
     Dates: start: 20171227
  3. PHENYTOIN SODIUM. [Concomitant]
     Active Substance: PHENYTOIN SODIUM
     Dosage: 50 MILLIGRAM DAILY; (TAKES 50MG AT 8PM, 25MG AT TEATIME AND 25MG AT BEDTIME) ? HELD
  4. GLICLAZIDE [Concomitant]
     Active Substance: GLICLAZIDE
     Dosage: 160 MILLIGRAM DAILY; WITH BREAKFAST AND AT TEATIME.
  5. LANSOPRAZOLE. [Concomitant]
     Active Substance: LANSOPRAZOLE
     Dosage: 60 MILLIGRAM DAILY;
  6. CARBAMAZEPINE. [Concomitant]
     Active Substance: CARBAMAZEPINE
     Dosage: 200 MILLIGRAM DAILY;
  7. LOPRAZOLAM [Concomitant]
     Active Substance: LOPRAZOLAM
     Dosage: 2 MILLIGRAM DAILY; AT NIGHT
  8. DIHYDROCODEINE [Concomitant]
     Active Substance: DIHYDROCODEINE
     Dosage: 270 MILLIGRAM DAILY;
  9. TAMSULOSIN [Concomitant]
     Active Substance: TAMSULOSIN
     Dosage: 400 MICROGRAM DAILY;
  10. DILTIAZEM. [Suspect]
     Active Substance: DILTIAZEM
     Dosage: 400 MILLIGRAM DAILY;
  11. SIMVASTATIN. [Concomitant]
     Active Substance: SIMVASTATIN
     Dosage: 20 MILLIGRAM DAILY; AT NIGHT
  12. DIAZEPAM. [Concomitant]
     Active Substance: DIAZEPAM
     Dosage: 6 MILLIGRAM DAILY;
  13. FYBOGEL [Concomitant]
     Active Substance: PLANTAGO OVATA SEED
     Dosage: 2 DOSAGE FORMS DAILY;
     Dates: start: 20180223
  14. ORAMORPH [Concomitant]
     Active Substance: MORPHINE SULFATE
     Dosage: THREE TO FOUR TIMES DAILY THIS LAST 10 DAYS?10MG/5ML
     Route: 048
     Dates: start: 20180302
  15. MONOMIL XL [Concomitant]
     Active Substance: ISOSORBIDE MONONITRATE
     Dosage: 60 MILLIGRAM DAILY;
  16. DAPAGLIFLOZIN. [Concomitant]
     Active Substance: DAPAGLIFLOZIN
     Dosage: 5 MILLIGRAM DAILY;

REACTIONS (2)
  - Nodal arrhythmia [Recovered/Resolved]
  - Atrial fibrillation [Unknown]
